FAERS Safety Report 5040511-1 (Version None)
Quarter: 2006Q2

REPORT INFORMATION
  Report Type: 
  Country: None (occurrence: None)
  Receive Date: 20060630
  Receipt Date: 20060622
  Transmission Date: 20061013
  Serious: Yes (Death, Congenital Anomaly)
  Sender: FDA-Public Use
  Company Number: US-ABBOTT-06P-163-0336948-00

PATIENT
  Sex: Female
  Weight: 0.33 kg

DRUGS (2)
  1. KALETRA [Suspect]
     Indication: DRUG EXPOSURE DURING PREGNANCY
  2. TENOFOVIR DISOPROXIL FUMARATE [Suspect]
     Indication: DRUG EXPOSURE DURING PREGNANCY

REACTIONS (3)
  - CONGENITAL ANOMALY [None]
  - DRUG EXPOSURE DURING PREGNANCY [None]
  - STILLBIRTH [None]
